FAERS Safety Report 13966726 (Version 1)
Quarter: 2017Q3

REPORT INFORMATION
  Report Type: Spontaneous
  Country: US (occurrence: US)
  Receive Date: 20170913
  Receipt Date: 20170913
  Transmission Date: 20171128
  Serious: Yes (Disabling)
  Sender: FDA-Public Use
  Company Number: None

PATIENT
  Age: 47 Year
  Sex: Female
  Weight: 95.4 kg

DRUGS (4)
  1. TYLENOL [Concomitant]
     Active Substance: ACETAMINOPHEN
  2. OXYCODONE/ ACETAMINOPHEN 5-325MG TAB [Suspect]
     Active Substance: ACETAMINOPHEN\OXYCODONE HYDROCHLORIDE
     Indication: PAIN
     Dosage: 5-325 MG TAB ,   QUANTITY:112 TABLET(S);?
     Route: 048
     Dates: start: 20170830, end: 20170904
  3. MOROPHINE SULFATE IMM REL [Concomitant]
     Active Substance: MORPHINE SULFATE
  4. ARMODAFINIL. [Concomitant]
     Active Substance: ARMODAFINIL

REACTIONS (1)
  - Therapy non-responder [None]

NARRATIVE: CASE EVENT DATE: 20170830
